FAERS Safety Report 24146317 (Version 2)
Quarter: 2024Q3

REPORT INFORMATION
  Report Type: Spontaneous
  Country: JP (occurrence: JP)
  Receive Date: 20240729
  Receipt Date: 20240930
  Transmission Date: 20241016
  Serious: Yes (Other)
  Sender: BRISTOL MYERS SQUIBB
  Company Number: JP-ONO-2024JP013627

PATIENT
  Age: 52 Year
  Sex: Male

DRUGS (1)
  1. OPDIVO [Suspect]
     Active Substance: NIVOLUMAB
     Indication: Malignant melanoma
     Route: 041
     Dates: start: 20210803, end: 20220705

REACTIONS (6)
  - Autoimmune thyroiditis [Unknown]
  - Cardiac failure [Recovered/Resolved]
  - Blood thyroid stimulating hormone decreased [Unknown]
  - Thyroiditis [Unknown]
  - Metastatic malignant melanoma [Unknown]
  - Post procedural complication [Recovered/Resolved]

NARRATIVE: CASE EVENT DATE: 20210831
